FAERS Safety Report 7917569-2 (Version None)
Quarter: 2011Q4

REPORT INFORMATION
  Report Type: 
  Country: None (occurrence: None)
  Receive Date: 20111116
  Receipt Date: 20111108
  Transmission Date: 20120403
  Serious: Yes (Other)
  Sender: FDA-Public Use
  Company Number: US-NOVOPROD-336580

PATIENT

DRUGS (8)
  1. METFORMIN HCL [Concomitant]
     Indication: DIABETES MELLITUS
  2. ZOCOR [Concomitant]
     Indication: BLOOD CHOLESTEROL INCREASED
  3. GLYBURIDE [Concomitant]
     Indication: DIABETES MELLITUS
  4. VICTOZA [Suspect]
     Indication: DIABETES MELLITUS
     Dosage: UNKNOWN
     Route: 058
     Dates: start: 20110328
  5. HYDROCHLOROTHIAZIDE [Concomitant]
     Indication: HYPERTENSION
  6. CARDURA [Concomitant]
     Indication: HYPERTENSION
  7. METHYLDOPA [Concomitant]
     Indication: HYPERTENSION
     Dosage: UNK
     Dates: start: 20110328
  8. FOSINOPRIL SODIUM [Concomitant]
     Indication: HYPERTENSION

REACTIONS (2)
  - PANCREATIC CARCINOMA [None]
  - WEIGHT DECREASED [None]
